FAERS Safety Report 8619279-5 (Version None)
Quarter: 2012Q3

REPORT INFORMATION
  Report Type: 
  Country: None (occurrence: None)
  Receive Date: 20120824
  Receipt Date: 20120810
  Transmission Date: 20120928
  Serious: Yes (Disabling, Other)
  Sender: FDA-Public Use
  Company Number: US-ASTELLAS-2012US006924

PATIENT
  Sex: Female

DRUGS (3)
  1. VESICARE [Suspect]
     Indication: HYPERTONIC BLADDER
     Dosage: UNK
     Route: 048
     Dates: start: 20080804
  2. ESTRACE [Suspect]
     Indication: HYPERTONIC BLADDER
     Dosage: UNK
     Route: 061
     Dates: start: 20080101
  3. UNSPECIFIED DIABETIC MEDICATIONS [Suspect]
     Indication: DIABETES MELLITUS
     Dosage: UNK
     Route: 065

REACTIONS (16)
  - APHASIA [None]
  - PAIN [None]
  - MUSCLE SPASMS [None]
  - ARTHRITIS [None]
  - FALL [None]
  - BLOOD GLUCOSE INCREASED [None]
  - EYE DISORDER [None]
  - DRY EYE [None]
  - EPIGASTRIC DISCOMFORT [None]
  - LOSS OF CONSCIOUSNESS [None]
  - ABASIA [None]
  - ARTHRALGIA [None]
  - RASH PRURITIC [None]
  - GAIT DISTURBANCE [None]
  - MYALGIA [None]
  - AMNESIA [None]
